FAERS Safety Report 21844838 (Version 1)
Quarter: 2023Q1

REPORT INFORMATION
  Report Type: Spontaneous
  Country: SG (occurrence: SG)
  Receive Date: 20230110
  Receipt Date: 20230110
  Transmission Date: 20230417
  Serious: Yes (Death, Life-Threatening, Hospitalization)
  Sender: FDA-Public Use
  Company Number: SG-MYLANLABS-2022M1115958

PATIENT
  Age: 22 Year
  Sex: Female

DRUGS (9)
  1. INSULIN GLARGINE [Suspect]
     Active Substance: INSULIN GLARGINE
     Indication: Hyperkalaemia
     Dosage: 10 UNITS
     Route: 065
  2. DEXTROSE [Suspect]
     Active Substance: DEXTROSE
     Indication: Hyperkalaemia
     Dosage: UNK
     Route: 042
  3. CALCIUM GLUCONATE [Suspect]
     Active Substance: CALCIUM GLUCONATE
     Indication: Hyperkalaemia
     Dosage: 10 MILLIMOLE
     Route: 065
  4. SODIUM BICARBONATE [Suspect]
     Active Substance: SODIUM BICARBONATE
     Indication: Hyperkalaemia
     Dosage: 100 MILLILITER
     Route: 042
  5. ATROPINE [Suspect]
     Active Substance: ATROPINE
     Indication: Bradycardia
     Dosage: 0.6 MILLIGRAM
     Route: 042
  6. DIGIFAB [Suspect]
     Active Substance: OVINE DIGOXIN IMMUNE FAB
     Indication: Herbal toxicity
     Dosage: 200 MILLIGRAM, FIVE VIALS; 40 MG PER VIAL
     Route: 042
  7. DIGIFAB [Suspect]
     Active Substance: OVINE DIGOXIN IMMUNE FAB
     Dosage: ANOTHER FIVE VIALS
     Route: 042
  8. EGG PHOSPHOLIPIDS\GLYCERIN\SOYBEAN OIL [Suspect]
     Active Substance: EGG PHOSPHOLIPIDS\GLYCERIN\SOYBEAN OIL
     Indication: Herbal toxicity
     Dosage: 500 MILLILITER
     Route: 065
  9. ACTIVATED CHARCOAL [Concomitant]
     Active Substance: ACTIVATED CHARCOAL
     Indication: Herbal toxicity
     Dosage: UNK
     Route: 065

REACTIONS (1)
  - Drug ineffective [Fatal]
